FAERS Safety Report 6551681-8 (Version None)
Quarter: 2010Q1

REPORT INFORMATION
  Report Type: 
  Country: None (occurrence: None)
  Receive Date: 20100126
  Receipt Date: 20100112
  Transmission Date: 20100710
  Serious: Yes (Disabling, Other)
  Sender: FDA-Public Use
  Company Number: US-BAYER-200917846NA

PATIENT
  Age: 41 Year
  Sex: Female

DRUGS (28)
  1. MAGNEVIST [Suspect]
     Indication: NUCLEAR MAGNETIC RESONANCE IMAGING
     Route: 042
     Dates: start: 20061213, end: 20061213
  2. MAGNEVIST [Suspect]
     Route: 042
     Dates: start: 20061227, end: 20061227
  3. MAGNEVIST [Suspect]
     Dates: start: 20020131, end: 20020131
  4. MAGNEVIST [Suspect]
     Dates: start: 20030304, end: 20030304
  5. MAGNEVIST [Suspect]
     Dates: start: 20040304, end: 20040304
  6. MAGNEVIST [Suspect]
     Dates: start: 20040812, end: 20040812
  7. MAGNEVIST [Suspect]
     Dates: start: 20061213, end: 20061213
  8. MAGNEVIST [Suspect]
     Dates: start: 20050111, end: 20050111
  9. MAGNEVIST [Suspect]
     Dates: start: 20070216, end: 20070216
  10. LIPITOR [Concomitant]
     Indication: BLOOD CHOLESTEROL INCREASED
  11. SENSIPAR [Concomitant]
     Indication: BLOOD PHOSPHORUS INCREASED
     Route: 048
  12. ASPIRIN [Concomitant]
  13. NEURONTIN [Concomitant]
  14. CALCIUM [Concomitant]
  15. RENVELA [Concomitant]
     Indication: BLOOD PHOSPHORUS INCREASED
     Dosage: 2 PER MEAL
     Route: 048
  16. DIATX [Concomitant]
  17. PERI-COLACE [Concomitant]
  18. PRILOSEC [Concomitant]
  19. TRAMADOL [Concomitant]
  20. EPOGEN [Concomitant]
     Indication: DIALYSIS
  21. ZEMPLAR [Concomitant]
     Indication: DIALYSIS
  22. IRON [Concomitant]
     Indication: DIALYSIS
  23. CELLCEPT [Concomitant]
     Dates: start: 19990101, end: 20050101
  24. RAPAMUNE [Concomitant]
     Dates: start: 19990101, end: 20050101
  25. LEVOTHYROXINE SODIUM [Concomitant]
  26. METAXALONE [Concomitant]
  27. OXYCODONE [Concomitant]
  28. TAMOXIFEN CITRATE [Concomitant]

REACTIONS (38)
  - ANXIETY [None]
  - ASTHENIA [None]
  - BACK PAIN [None]
  - BALANCE DISORDER [None]
  - BONE CALLUS EXCESSIVE [None]
  - BURNING SENSATION [None]
  - COORDINATION ABNORMAL [None]
  - CORNEAL DEPOSITS [None]
  - DEFORMITY [None]
  - DRY SKIN [None]
  - DYSPHAGIA [None]
  - EMOTIONAL DISTRESS [None]
  - EXFOLIATIVE RASH [None]
  - FATIGUE [None]
  - FIBROSIS [None]
  - FLUID RETENTION [None]
  - GAIT DISTURBANCE [None]
  - GENERAL PHYSICAL HEALTH DETERIORATION [None]
  - INCREASED TENDENCY TO BRUISE [None]
  - JOINT CONTRACTURE [None]
  - LIVEDO RETICULARIS [None]
  - MOBILITY DECREASED [None]
  - MUSCULOSKELETAL STIFFNESS [None]
  - MYALGIA [None]
  - NEPHROGENIC SYSTEMIC FIBROSIS [None]
  - OEDEMA [None]
  - PAIN [None]
  - PAIN IN EXTREMITY [None]
  - QUALITY OF LIFE DECREASED [None]
  - SENSATION OF HEAVINESS [None]
  - SKIN DISORDER [None]
  - SKIN EROSION [None]
  - SKIN FIBROSIS [None]
  - SKIN FRAGILITY [None]
  - SKIN HYPERTROPHY [None]
  - SKIN INDURATION [None]
  - VISUAL IMPAIRMENT [None]
  - XEROSIS [None]
